FAERS Safety Report 6072264-2 (Version None)
Quarter: 2009Q1

REPORT INFORMATION
  Report Type: 
  Country: None (occurrence: None)
  Receive Date: 20090210
  Receipt Date: 20090206
  Transmission Date: 20090719
  Serious: Yes (Hospitalization)
  Sender: FDA-Public Use
  Company Number: US-ASTRAZENECA-2009UW03475

PATIENT
  Age: 23518 Day
  Sex: Female
  Weight: 90.7 kg

DRUGS (2)
  1. ARIMIDEX [Suspect]
     Indication: BREAST CANCER METASTATIC
     Route: 048
     Dates: start: 20080731
  2. AVASTIN [Suspect]
     Indication: BREAST CANCER METASTATIC
     Dates: end: 20081113

REACTIONS (3)
  - ABDOMINAL PAIN UPPER [None]
  - INCISION SITE PAIN [None]
  - NAUSEA [None]
